FAERS Safety Report 4931095-4 (Version None)
Quarter: 2006Q1

REPORT INFORMATION
  Report Type: 
  Country: None (occurrence: None)
  Receive Date: 20060227
  Receipt Date: 20060217
  Transmission Date: 20060701
  Serious: Yes (Hospitalization, Other)
  Sender: FDA-Public Use
  Company Number: 2006024641

PATIENT
  Age: 62 Year
  Sex: Male

DRUGS (2)
  1. CARDURA [Suspect]
     Indication: BENIGN PROSTATIC HYPERPLASIA
     Dosage: 4 MG (4 MG, DAILY INTERVAL:  EVERY DAY), ORAL
     Route: 048
     Dates: start: 20060101, end: 20060201
  2. METHOTREXATE [Concomitant]

REACTIONS (4)
  - ATRIAL FIBRILLATION [None]
  - FALL [None]
  - SPINAL FRACTURE [None]
  - SYNCOPE [None]
